FAERS Safety Report 8087374-8 (Version None)
Quarter: 2012Q1

REPORT INFORMATION
  Report Type: 
  Country: None (occurrence: None)
  Receive Date: 20120128
  Receipt Date: 20110509
  Transmission Date: 20120608
  Serious: No
  Sender: FDA-Public Use
  Company Number: US-ABBOTT-11P-163-0724354-00

PATIENT
  Sex: Female
  Weight: 58.112 kg

DRUGS (3)
  1. UNKNOWN MEDICATION [Concomitant]
     Indication: PAIN
  2. UNKNOWN MEDICATION [Concomitant]
     Indication: HYPERTENSION
  3. HUMIRA [Suspect]
     Indication: RHEUMATOID ARTHRITIS
     Dates: start: 20100101

REACTIONS (1)
  - PAIN IN EXTREMITY [None]
